FAERS Safety Report 11127994 (Version 3)
Quarter: 2015Q4

REPORT INFORMATION
  Report Type: Spontaneous
  Country: US (occurrence: US)
  Receive Date: 20150521
  Receipt Date: 20151127
  Transmission Date: 20160304
  Serious: Yes (Hospitalization)
  Sender: FDA-Public Use
  Company Number: US-PFIZER INC-2015170097

PATIENT
  Age: 65 Year
  Sex: Female
  Weight: 77.98 kg

DRUGS (10)
  1. REVATIO [Suspect]
     Active Substance: SILDENAFIL CITRATE
     Indication: PULMONARY ARTERIAL HYPERTENSION
     Dosage: 20 MG, 3X/DAY
     Route: 048
     Dates: start: 20120320
  2. SOTALOL. [Concomitant]
     Active Substance: SOTALOL
     Dosage: 160 MG, 2X/DAY (TWO TABLETS BY MOUTH TWICE DAILY)
     Route: 048
  3. FUROSEMIDE. [Concomitant]
     Active Substance: FUROSEMIDE
     Dosage: 20 MG, DAILY
     Route: 048
  4. VITAMIN D3 [Concomitant]
     Active Substance: CHOLECALCIFEROL
     Dosage: 1000 IU, 1X/DAY
     Route: 048
  5. COROVAL B [Concomitant]
     Dosage: 1 DF, DAILY (AMLODIPINE BESILATE-5MG/BENAZEPRIL HYDROCHLORIDE-20MG)
     Route: 048
  6. NEXIUM [Concomitant]
     Active Substance: ESOMEPRAZOLE MAGNESIUM
     Dosage: 40 MG, DAILY
     Route: 048
  7. SIMVASTATIN. [Concomitant]
     Active Substance: SIMVASTATIN
     Dosage: 40 MG, 1X/DAY (IN THE EVENING)
     Route: 048
  8. WARFARIN [Concomitant]
     Active Substance: WARFARIN
     Dosage: DAILY (5 MG 1-2 TABLET BY ORAL ROUTE EVERY DAY AS DIRECTED)
     Route: 048
  9. KLOR-CON M20 [Concomitant]
     Active Substance: POTASSIUM CHLORIDE
     Dosage: ONE TABLET EVERY DAY WITH FOOD
     Route: 048
  10. VITAMIN B COMPLEX [Concomitant]
     Active Substance: CYANOCOBALAMIN\DEXPANTHENOL\NIACINAMIDE\PYRIDOXINE HYDROCHLORIDE\RIBOFLAVIN 5^-PHOSPHATE SODIUM\THIAMINE HYDROCHLORIDE\VITAMIN B COMPLEX
     Dosage: 1 TABLET, 1X/DAY
     Route: 048

REACTIONS (2)
  - Expired product administered [Recovered/Resolved]
  - Carcinoid tumour [Recovered/Resolved]

NARRATIVE: CASE EVENT DATE: 201505
